FAERS Safety Report 9304169 (Version 1)
Quarter: 2013Q2

REPORT INFORMATION
  Report Type: Spontaneous
  Country: US (occurrence: US)
  Receive Date: 20130522
  Receipt Date: 20130522
  Transmission Date: 20140414
  Serious: No
  Sender: FDA-Public Use
  Company Number: US-B.I. PHARMACEUTICALS,INC./RIDGEFIELD-2013-BI-13942BP

PATIENT
  Sex: Female

DRUGS (8)
  1. MIRAPEX [Suspect]
  2. LYRICA [Suspect]
  3. PROZAC [Suspect]
  4. OXYCONTIN [Suspect]
  5. DEPAKOTE [Suspect]
  6. REMERON [Suspect]
  7. CARBIDOPA/LEVODOPA [Suspect]
  8. XANAX [Suspect]

REACTIONS (4)
  - Local swelling [Unknown]
  - Oedema [Unknown]
  - Neuropathy peripheral [Unknown]
  - Spinal disorder [Unknown]
